FAERS Safety Report 15656439 (Version 1)
Quarter: 2018Q4

REPORT INFORMATION
  Report Type: Spontaneous
  Country: US (occurrence: US)
  Receive Date: 20181126
  Receipt Date: 20181126
  Transmission Date: 20190205
  Serious: Yes (Disabling, Other)
  Sender: FDA-Public Use
  Company Number: None

PATIENT
  Age: 23 Year
  Sex: Male
  Weight: 76.5 kg

DRUGS (1)
  1. METHYLPHENIDATE 54MG ER OMS TABLET [Suspect]
     Active Substance: METHYLPHENIDATE
     Indication: ATTENTION DEFICIT/HYPERACTIVITY DISORDER
     Dosage: ?          QUANTITY:30 TABLET(S);?
     Route: 048
     Dates: start: 20181002, end: 20181028

REACTIONS (9)
  - Agitation [None]
  - Tremor [None]
  - Burning sensation [None]
  - Psychomotor hyperactivity [None]
  - Anxiety [None]
  - Disturbance in attention [None]
  - Restlessness [None]
  - Product substitution issue [None]
  - Feeling hot [None]

NARRATIVE: CASE EVENT DATE: 20181028
